FAERS Safety Report 6912503-6 (Version None)
Quarter: 2010Q3

REPORT INFORMATION
  Report Type: 
  Country: None (occurrence: None)
  Receive Date: 20100806
  Receipt Date: 20080626
  Transmission Date: 20110219
  Serious: No
  Sender: FDA-Public Use
  Company Number: US-PFIZER INC-2008038141

PATIENT
  Age: 85 Year
  Sex: Female

DRUGS (1)
  1. NORPACE [Suspect]
     Indication: ATRIAL FIBRILLATION

REACTIONS (2)
  - BLADDER DISORDER [None]
  - CONSTIPATION [None]
